FAERS Safety Report 7724329 (Version 4)
Quarter: 2014Q1

REPORT INFORMATION
  Report Type: Report from Study
  Country: KR (occurrence: KR)
  Receive Date: 20101221
  Receipt Date: 20140219
  Transmission Date: 20141002
  Serious: Yes (Hospitalization)
  Sender: FDA-Public Use
  Company Number: KR-JNJFOC-20101204241

PATIENT
  Age: 28 Year
  Sex: Male
  Weight: 42 kg

DRUGS (12)
  1. REMICADE [Suspect]
     Indication: CROHN^S DISEASE
     Dosage: 1ST INFUSION
     Route: 042
     Dates: start: 20101111
  2. REMICADE [Suspect]
     Indication: CROHN^S DISEASE
     Route: 042
     Dates: start: 20101202
  3. MUCOSTA [Concomitant]
     Indication: CROHN^S DISEASE
     Route: 048
     Dates: start: 20101006
  4. MUCOSTA [Concomitant]
     Indication: ANTACID THERAPY
     Route: 048
     Dates: start: 20101006
  5. ALGION [Concomitant]
     Indication: GASTROINTESTINAL PAIN
     Route: 048
     Dates: start: 20101014
  6. METRONIDAZOL [Concomitant]
     Indication: PROPHYLAXIS
     Route: 048
     Dates: start: 20101006
  7. FOLIC ACID [Concomitant]
     Indication: ANAEMIA
     Route: 048
     Dates: start: 20101006
  8. ANTIBIOTIC [Concomitant]
     Indication: PROPHYLAXIS
     Route: 048
     Dates: start: 20101006
  9. PENTASA [Concomitant]
     Indication: CROHN^S DISEASE
     Route: 048
     Dates: start: 20101006
  10. ANTIDIARRHEALS [Concomitant]
  11. METRONIDAZOLE [Concomitant]
     Indication: CROHN^S DISEASE
     Route: 048
  12. IMUTERA [Concomitant]
     Indication: CROHN^S DISEASE
     Route: 048
     Dates: start: 20101006

REACTIONS (6)
  - Portal vein thrombosis [Recovering/Resolving]
  - Enterocutaneous fistula [Not Recovered/Not Resolved]
  - Pyrexia [Recovered/Resolved]
  - Dyspnoea [Recovered/Resolved]
  - Infusion related reaction [Recovered/Resolved]
  - Tachypnoea [Recovered/Resolved]
